FAERS Safety Report 4636896-8 (Version None)
Quarter: 2005Q2

REPORT INFORMATION
  Report Type: 
  Country: None (occurrence: None)
  Receive Date: 20050415
  Receipt Date: 20050311
  Transmission Date: 20051028
  Serious: Yes (Life-Threatening, Hospitalization, Other)
  Sender: FDA-Public Use
  Company Number: US-MERCK-0503USA01800

PATIENT
  Age: 60 Year
  Sex: Female
  Weight: 109 kg

DRUGS (6)
  1. VIOXX [Suspect]
     Indication: BACK PAIN
     Route: 048
     Dates: start: 20010307, end: 20030810
  2. VIOXX [Suspect]
     Indication: OSTEOARTHRITIS
     Route: 048
     Dates: start: 20010307, end: 20030810
  3. ENALAPRIL MALEATE [Concomitant]
     Route: 065
  4. GLUCOPHAGE [Concomitant]
     Route: 065
  5. MICRONASE [Concomitant]
     Route: 065
  6. MEVACOR [Concomitant]
     Route: 048

REACTIONS (7)
  - CARDIAC ARREST [None]
  - HYPERLIPIDAEMIA [None]
  - HYPERTENSION [None]
  - HYPERTENSIVE HEART DISEASE [None]
  - MITRAL VALVE SCLEROSIS [None]
  - VENTRICULAR ARRHYTHMIA [None]
  - VENTRICULAR HYPERTROPHY [None]
